FAERS Safety Report 8201358-8 (Version None)
Quarter: 2012Q1

REPORT INFORMATION
  Report Type: 
  Country: None (occurrence: None)
  Receive Date: 20120312
  Receipt Date: 20120307
  Transmission Date: 20120608
  Serious: Yes (Other)
  Sender: FDA-Public Use
  Company Number: US-BAYER-2012-022978

PATIENT
  Sex: Female

DRUGS (1)
  1. ALEVE (CAPLET) [Suspect]
     Indication: ANALGESIC THERAPY
     Dosage: BOTTLE COUNT 24
     Route: 048

REACTIONS (5)
  - FAECES DISCOLOURED [None]
  - DIZZINESS [None]
  - ABDOMINAL PAIN UPPER [None]
  - OEDEMA [None]
  - PAIN [None]
